FAERS Safety Report 12763010 (Version 1)
Quarter: 2016Q3

REPORT INFORMATION
  Report Type: Spontaneous
  Country: US (occurrence: US)
  Receive Date: 20160915
  Receipt Date: 20160915
  Transmission Date: 20161109
  Serious: Yes (Hospitalization)
  Sender: FDA-Public Use
  Company Number: None

PATIENT
  Age: 70 Year
  Sex: Female

DRUGS (11)
  1. HARVONI [Suspect]
     Active Substance: LEDIPASVIR\SOFOSBUVIR
     Indication: HEPATITIS C
     Route: 048
     Dates: start: 20160510
  2. AMLODIPINE [Concomitant]
     Active Substance: AMLODIPINE BESYLATE
  3. TAMOXIFEN [Concomitant]
     Active Substance: TAMOXIFEN
  4. ATENOLOL. [Concomitant]
     Active Substance: ATENOLOL
  5. ENBREL [Suspect]
     Active Substance: ETANERCEPT
     Indication: AUTOIMMUNE DISORDER
     Dosage: 50MG QWK UNDER THE SKIN
     Dates: start: 20150116
  6. OXYCODONE [Concomitant]
     Active Substance: OXYCODONE
  7. MELOXICAM. [Concomitant]
     Active Substance: MELOXICAM
  8. HIBICLENS [Concomitant]
     Active Substance: CHLORHEXIDINE GLUCONATE
  9. LISINOPRIL. [Concomitant]
     Active Substance: LISINOPRIL
  10. SENNA LAXATIVE [Concomitant]
     Active Substance: SENNOSIDES
  11. OMEPRAZOLE. [Concomitant]
     Active Substance: OMEPRAZOLE

REACTIONS (4)
  - Condition aggravated [None]
  - Therapy cessation [None]
  - Pain [None]
  - Joint swelling [None]

NARRATIVE: CASE EVENT DATE: 20160607
